FAERS Safety Report 5492261-5 (Version None)
Quarter: 2007Q4

REPORT INFORMATION
  Report Type: 
  Country: None (occurrence: None)
  Receive Date: 20071022
  Receipt Date: 20071009
  Transmission Date: 20080405
  Serious: Yes (Hospitalization)
  Sender: FDA-Public Use
  Company Number: JP-ELI_LILLY_AND_COMPANY-JP200707005507

PATIENT
  Sex: Female
  Weight: 50 kg

DRUGS (6)
  1. RALOXIFENE HYDROCHLORIDE [Suspect]
     Indication: OSTEOPOROSIS POSTMENOPAUSAL
     Dosage: 60 MG, DAILY (1/D)
     Route: 048
     Dates: start: 20050510, end: 20070608
  2. RALOXIFENE HYDROCHLORIDE [Suspect]
     Dosage: 60 MG, DAILY (1/D)
     Route: 048
     Dates: start: 20051101, end: 20070608
  3. MOBIC [Concomitant]
     Indication: BACK PAIN
     Dosage: 10 MG, DAILY (1/D)
     Route: 048
     Dates: start: 20050712, end: 20070410
  4. MARZULENE S [Concomitant]
     Indication: PROPHYLAXIS
     Dosage: 0.5 G, DAILY (1/D)
     Route: 048
     Dates: start: 20060222, end: 20070410
  5. OPALMON [Concomitant]
     Indication: LUMBAR SPINAL STENOSIS
     Dosage: 15 UG, DAILY (1/D)
     Dates: start: 20060523, end: 20070608
  6. METHYCOBAL [Concomitant]
     Indication: HYPOAESTHESIA
     Dosage: 1500 UG, DAILY (1/D)
     Dates: start: 20060523, end: 20070608

REACTIONS (2)
  - BACK PAIN [None]
  - COMPRESSION FRACTURE [None]
